FAERS Safety Report 20386334 (Version 3)
Quarter: 2022Q1

REPORT INFORMATION
  Report Type: Report from Study
  Country: US (occurrence: US)
  Receive Date: 20220127
  Receipt Date: 20220215
  Transmission Date: 20220423
  Serious: Yes (Other)
  Sender: FDA-Public Use
  Company Number: US-ALLERGAN-2202862US

PATIENT
  Sex: Female

DRUGS (8)
  1. ATOGEPANT [Suspect]
     Active Substance: ATOGEPANT
     Indication: Migraine
     Dosage: 60 MG, QD
     Route: 048
  2. UBRELVY [Concomitant]
     Active Substance: UBROGEPANT
     Indication: Migraine
     Dosage: UNK, PRN
  3. FERROUS SULFATE [Concomitant]
     Active Substance: FERROUS SULFATE
     Indication: Anaemia
     Dosage: 325 MG
  4. SERTRALINE [Concomitant]
     Active Substance: SERTRALINE HYDROCHLORIDE
     Indication: Depression
     Dosage: 100 MG
  5. LAMOTRIGINE [Concomitant]
     Active Substance: LAMOTRIGINE
     Indication: Depression
     Dosage: 50 MG
  6. UNITHROID [Concomitant]
     Active Substance: LEVOTHYROXINE SODIUM
     Indication: Thyroid disorder
     Dosage: 50 ?G
  7. NALTREXONE [Concomitant]
     Active Substance: NALTREXONE
     Indication: Intentional self-injury
     Dosage: 50 MG
  8. NALTREXONE [Concomitant]
     Active Substance: NALTREXONE
     Indication: Depression

REACTIONS (4)
  - Suicidal ideation [Unknown]
  - Condition aggravated [Unknown]
  - Depression [Unknown]
  - Rash [Unknown]
